FAERS Safety Report 7778389-5 (Version None)
Quarter: 2011Q3

REPORT INFORMATION
  Report Type: 
  Country: None (occurrence: None)
  Receive Date: 20110926
  Receipt Date: 20110922
  Transmission Date: 20111222
  Serious: Yes (Death, Hospitalization)
  Sender: FDA-Public Use
  Company Number: US-GLAXOSMITHKLINE-A0885679A

PATIENT
  Age: 77 Year
  Sex: Male

DRUGS (4)
  1. ALTACE [Concomitant]
  2. TOPROL-XL [Concomitant]
  3. LIPITOR [Concomitant]
  4. AVANDIA [Suspect]
     Indication: DIABETES MELLITUS
     Dosage: 4MG PER DAY
     Route: 048
     Dates: start: 20041102, end: 20070614

REACTIONS (7)
  - MYOCARDIAL INFARCTION [None]
  - GAIT DISTURBANCE [None]
  - DEATH [None]
  - CONGESTIVE CARDIOMYOPATHY [None]
  - ATRIAL FIBRILLATION [None]
  - CARDIAC DISORDER [None]
  - CARDIAC FAILURE CONGESTIVE [None]
